FAERS Safety Report 5855912-9 (Version None)
Quarter: 2008Q3

REPORT INFORMATION
  Report Type: 
  Country: None (occurrence: None)
  Receive Date: 20080825
  Receipt Date: 20080819
  Transmission Date: 20090109
  Serious: Yes (Hospitalization)
  Sender: FDA-Public Use
  Company Number: JP-ELI_LILLY_AND_COMPANY-JP200803005112

PATIENT
  Sex: Male
  Weight: 60.8 kg

DRUGS (13)
  1. PEMETREXED [Suspect]
     Indication: PLEURAL MESOTHELIOMA MALIGNANT
     Dosage: 830 MG, OTHER
     Route: 042
     Dates: start: 20071218, end: 20071218
  2. CISPLATIN [Suspect]
     Indication: PLEURAL MESOTHELIOMA MALIGNANT
     Dosage: 120 MG, OTHER
     Route: 042
     Dates: start: 20071218, end: 20071218
  3. PANVITAN [Concomitant]
     Dosage: 1 G, DAILY (1/D)
     Route: 048
     Dates: start: 20071207, end: 20080124
  4. CYANOCOBALAMIN [Concomitant]
     Dosage: 1 MG, DAILY (1/D)
     Route: 030
     Dates: start: 20071207, end: 20071207
  5. PRIMPERAN /00041901/ [Concomitant]
     Indication: NAUSEA
     Dosage: 10 MG, DAILY (1/D)
     Route: 048
     Dates: start: 20071219, end: 20071224
  6. PRIMPERAN /00041901/ [Concomitant]
     Dosage: 20 MG, DAILY (1/D)
     Route: 042
     Dates: start: 20071223, end: 20080104
  7. POLARAMINE [Concomitant]
     Indication: NAUSEA
     Dosage: 2 MG, DAILY (1/D)
     Route: 048
     Dates: start: 20071219, end: 20071224
  8. MAGLAX [Concomitant]
     Indication: CONSTIPATION
     Dosage: 500 MG, DAILY (1/D)
     Route: 048
     Dates: start: 20071222, end: 20071224
  9. GLYCERIN [Concomitant]
     Indication: CONSTIPATION
     Dosage: 60 ML, DAILY (1/D)
     Route: 054
     Dates: start: 20071222, end: 20071222
  10. ALBUMIN TANNATE [Concomitant]
     Indication: DIARRHOEA
     Dosage: 3 G, DAILY (1/D)
     Route: 048
     Dates: start: 20071227, end: 20071230
  11. ALBUMIN TANNATE [Concomitant]
     Dosage: 3 G, DAILY (1/D)
     Route: 048
     Dates: start: 20080108, end: 20080111
  12. LAC B [Concomitant]
     Indication: DIARRHOEA
     Dosage: 3 G, DAILY (1/D)
     Route: 048
     Dates: start: 20071227, end: 20071230
  13. LAC B [Concomitant]
     Dosage: 3 G, DAILY (1/D)
     Route: 048
     Dates: start: 20080108, end: 20080111

REACTIONS (5)
  - BLOOD CALCIUM DECREASED [None]
  - BLOOD MAGNESIUM DECREASED [None]
  - BLOOD SODIUM DECREASED [None]
  - DYSPNOEA [None]
  - PLEURAL EFFUSION [None]
